FAERS Safety Report 20437527 (Version 1)
Quarter: 2022Q1

REPORT INFORMATION
  Report Type: Spontaneous
  Country: FR (occurrence: FR)
  Receive Date: 20220207
  Receipt Date: 20220207
  Transmission Date: 20220423
  Serious: Yes (Congenital Anomaly)
  Sender: FDA-Public Use
  Company Number: None

PATIENT
  Sex: Female

DRUGS (5)
  1. EFFEXOR [Suspect]
     Active Substance: VENLAFAXINE HYDROCHLORIDE
     Indication: Mental disorder
     Dosage: 4 DF, 1X/DAY
     Route: 064
     Dates: start: 20210624
  2. CYAMEMAZINE [Suspect]
     Active Substance: CYAMEMAZINE
     Indication: Mental disorder
     Dosage: 12.5 MG, 1X/DAY
     Route: 064
     Dates: start: 20210624
  3. OXAZEPAM [Suspect]
     Active Substance: OXAZEPAM
     Indication: Mental disorder
     Dosage: 2 DF, 1X/DAY
     Route: 064
     Dates: start: 20210624
  4. ABILIFY [Suspect]
     Active Substance: ARIPIPRAZOLE
     Indication: Mental disorder
     Dosage: 3 DF, 1X/DAY
     Route: 064
     Dates: start: 20210624
  5. INSULIN NOS [Concomitant]
     Active Substance: INSULIN NOS
     Dosage: 21 IU, 1X/DAY

REACTIONS (2)
  - Maternal exposure during pregnancy [Not Recovered/Not Resolved]
  - Teratoma [Not Recovered/Not Resolved]

NARRATIVE: CASE EVENT DATE: 20210101
